FAERS Safety Report 4404872-6 (Version None)
Quarter: 2004Q2

REPORT INFORMATION
  Report Type: 
  Country: None (occurrence: None)
  Receive Date: 20040618
  Receipt Date: 20040407
  Transmission Date: 20050107
  Serious: No
  Sender: FDA-Public Use
  Company Number: NSADSS2002036233

PATIENT
  Age: 48 Year
  Sex: Female
  Weight: 48.5349 kg

DRUGS (3)
  1. ORTHO EVRA [Suspect]
     Indication: CLUSTER HEADACHE
     Dosage: 1 DOSE(S), 3 IN 4 WEEK, TRANSDERMAL
     Route: 062
     Dates: start: 20020721, end: 20021005
  2. AVONEX [Concomitant]
  3. TOPAMAX [Concomitant]

REACTIONS (1)
  - MIGRAINE [None]
